FAERS Safety Report 9092790 (Version 1)
Quarter: 2013Q1

REPORT INFORMATION
  Report Type: Spontaneous
  Country: US (occurrence: None)
  Receive Date: 20130213
  Receipt Date: 20130213
  Transmission Date: 20140127
  Serious: Yes (Life-Threatening)
  Sender: FDA-Public Use
  Company Number: None

PATIENT
  Age: 65 Year
  Sex: Male
  Weight: 77.11 kg

DRUGS (1)
  1. LEVOTHYROXINE SODIUM [Suspect]
     Indication: HYPOTHYROIDISM
     Route: 048
     Dates: start: 20130209, end: 20130211

REACTIONS (10)
  - Headache [None]
  - Abdominal pain [None]
  - Gastrooesophageal reflux disease [None]
  - Confusional state [None]
  - Saliva altered [None]
  - Hypersomnia [None]
  - Fatigue [None]
  - Stupor [None]
  - Asthenia [None]
  - Product substitution issue [None]
